FAERS Safety Report 16101794 (Version 1)
Quarter: 2019Q1

REPORT INFORMATION
  Report Type: Spontaneous
  Country: US (occurrence: US)
  Receive Date: 20190321
  Receipt Date: 20190321
  Transmission Date: 20190418
  Serious: No
  Sender: FDA-Public Use
  Company Number: US-TEVA-2019-US-1017739

PATIENT
  Sex: Female

DRUGS (1)
  1. LETROZOLE TABLETS [Suspect]
     Active Substance: LETROZOLE
     Indication: OVARIAN CANCER
     Route: 065
     Dates: start: 2016

REACTIONS (5)
  - Fatigue [Recovered/Resolved]
  - Product use in unapproved indication [Unknown]
  - Pain [Recovered/Resolved]
  - Product prescribing error [Unknown]
  - Wrong technique in product usage process [Unknown]

NARRATIVE: CASE EVENT DATE: 2016
